FAERS Safety Report 5429164-8 (Version None)
Quarter: 2007Q3

REPORT INFORMATION
  Report Type: 
  Country: None (occurrence: None)
  Receive Date: 20070829
  Receipt Date: 20070815
  Transmission Date: 20080115
  Serious: No
  Sender: FDA-Public Use
  Company Number: US-ELI_LILLY_AND_COMPANY-US200706005489

PATIENT

DRUGS (1)
  1. CYMBALTA [Suspect]
     Dosage: UNK, UNK

REACTIONS (2)
  - HEPATITIS [None]
  - NAUSEA [None]
